FAERS Safety Report 12739198 (Version 1)
Quarter: 2016Q3

REPORT INFORMATION
  Report Type: Spontaneous
  Country: US (occurrence: US)
  Receive Date: 20160913
  Receipt Date: 20160913
  Transmission Date: 20161109
  Serious: Yes (Disabling)
  Sender: FDA-Public Use
  Company Number: None

PATIENT
  Age: 60 Year
  Sex: Male
  Weight: 99.79 kg

DRUGS (18)
  1. METOPROLOL. [Concomitant]
     Active Substance: METOPROLOL
  2. OMEGA-3 KRILL OIL [Concomitant]
  3. E [Concomitant]
  4. C [Concomitant]
  5. MELATONIN [Concomitant]
     Active Substance: MELATONIN
  6. B6 [Concomitant]
     Active Substance: PYRIDOXINE HYDROCHLORIDE
  7. VITAMIN D3 [Concomitant]
     Active Substance: CHOLECALCIFEROL
  8. K2 [Concomitant]
     Active Substance: JWH-018
  9. ADVICOR [Suspect]
     Active Substance: LOVASTATIN\NIACIN
  10. COQ10 [Concomitant]
     Active Substance: UBIDECARENONE
  11. VITAMIN B3 [Concomitant]
     Active Substance: NIACIN
  12. VITAMIN B12 [Concomitant]
     Active Substance: CYANOCOBALAMIN
  13. FOLIC ACID. [Concomitant]
     Active Substance: FOLIC ACID
  14. LIVALO [Suspect]
     Active Substance: PITAVASTATIN CALCIUM
  15. BENAZAPRIL [Concomitant]
  16. ALPHA LIPOID ACID [Concomitant]
  17. LIPITOR [Suspect]
     Active Substance: ATORVASTATIN CALCIUM
     Indication: BLOOD CHOLESTEROL INCREASED
     Dosage: 1 PILL
     Route: 048
     Dates: start: 20020209, end: 20160703
  18. CRESTOR [Suspect]
     Active Substance: ROSUVASTATIN CALCIUM

REACTIONS (19)
  - Asthenia [None]
  - Fatigue [None]
  - Insulin resistance [None]
  - Confusional state [None]
  - Suicidal ideation [None]
  - Dizziness [None]
  - Sleep disorder [None]
  - Muscle spasms [None]
  - Weight increased [None]
  - Myopathy [None]
  - Pruritus [None]
  - Cognitive disorder [None]
  - Amnesia [None]
  - Arthralgia [None]
  - Hostility [None]
  - Depression [None]
  - Myalgia [None]
  - Back pain [None]
  - Affective disorder [None]
